FAERS Safety Report 14334271 (Version 2)
Quarter: 2018Q1

REPORT INFORMATION
  Report Type: Spontaneous
  Country: US (occurrence: US)
  Receive Date: 20171228
  Receipt Date: 20180118
  Transmission Date: 20180509
  Serious: Yes (Death, Other)
  Sender: FDA-Public Use
  Company Number: US-GILEAD-2017-0312545

PATIENT
  Age: 33 Year
  Sex: Male
  Weight: 176.9 kg

DRUGS (18)
  1. VALSARTAN. [Concomitant]
     Active Substance: VALSARTAN
  2. HUMALOG [Concomitant]
     Active Substance: INSULIN LISPRO
  3. MINOXIDIL. [Concomitant]
     Active Substance: MINOXIDIL
  4. RANEXA [Suspect]
     Active Substance: RANOLAZINE
     Indication: PRODUCT USED FOR UNKNOWN INDICATION
     Dosage: UNK
     Route: 065
  5. KORLYM [Interacting]
     Active Substance: MIFEPRISTONE
     Indication: HYPERCORTICOIDISM
     Dosage: 1200 MG, QD
     Route: 065
     Dates: start: 201709, end: 2017
  6. KORLYM [Interacting]
     Active Substance: MIFEPRISTONE
     Dosage: 900 MG, QD
     Route: 065
     Dates: start: 201706, end: 201709
  7. PRAVASTATIN. [Concomitant]
     Active Substance: PRAVASTATIN
  8. KORLYM [Interacting]
     Active Substance: MIFEPRISTONE
     Dosage: 600 MG, QD
     Route: 065
     Dates: start: 20170616, end: 201706
  9. KORLYM [Interacting]
     Active Substance: MIFEPRISTONE
     Dosage: 300 MG, QD
     Route: 065
     Dates: start: 20170531, end: 20170615
  10. BUMETANIDE. [Concomitant]
     Active Substance: BUMETANIDE
  11. ABILIFY [Concomitant]
     Active Substance: ARIPIPRAZOLE
  12. NIFEDIPINE. [Concomitant]
     Active Substance: NIFEDIPINE
  13. METOPROLOL. [Concomitant]
     Active Substance: METOPROLOL
  14. LANTUS [Concomitant]
     Active Substance: INSULIN GLARGINE
  15. DEPAKOTE [Concomitant]
     Active Substance: DIVALPROEX SODIUM
  16. NITROSTAT [Concomitant]
     Active Substance: NITROGLYCERIN
  17. ASA [Concomitant]
     Active Substance: ASPIRIN
  18. CLOPIDOGREL [Concomitant]
     Active Substance: CLOPIDOGREL BISULFATE

REACTIONS (4)
  - Myocardial infarction [Unknown]
  - Labelled drug-drug interaction medication error [Unknown]
  - Death [Fatal]
  - Drug interaction [Unknown]

NARRATIVE: CASE EVENT DATE: 2017
